FAERS Safety Report 4833215-9 (Version None)
Quarter: 2005Q4

REPORT INFORMATION
  Report Type: 
  Country: None (occurrence: None)
  Receive Date: 20051117
  Receipt Date: 20051102
  Transmission Date: 20060501
  Serious: Yes (Other)
  Sender: FDA-Public Use
  Company Number: JP_051108078

PATIENT
  Age: 14 Year
  Sex: Female
  Weight: 28 kg

DRUGS (3)
  1. SOMATROPIN [Suspect]
     Indication: GROWTH HORMONE DEFICIENCY
  2. PREDNISOLONE [Concomitant]
  3. MIZORIBINE [Concomitant]

REACTIONS (3)
  - CONDITION AGGRAVATED [None]
  - LUPUS NEPHRITIS [None]
  - SYSTEMIC LUPUS ERYTHEMATOSUS [None]
